FAERS Safety Report 6093430 (Version 31)
Quarter: 2013Q3

REPORT INFORMATION
  Report Type: Spontaneous
  Country: US (occurrence: US)
  Receive Date: 20060728
  Receipt Date: 20130731
  Transmission Date: 20140515
  Serious: Yes (Death, Hospitalization, Other)
  Sender: FDA-Public Use
  Company Number: PHEH2006US09222

PATIENT
  Age: 87 Year
  Sex: Male

DRUGS (66)
  1. ZOMETA [Suspect]
     Indication: METASTASES TO BONE
     Dosage: 4 MG, QMO
     Route: 042
     Dates: start: 20030516, end: 200511
  2. ZOMETA [Suspect]
     Indication: PROSTATE CANCER METASTATIC
  3. ZOCOR [Concomitant]
  4. AVAPRO [Concomitant]
  5. ASPIRIN [Concomitant]
     Dosage: 81 MG, UNK
  6. DETROL [Concomitant]
     Dosage: 4 MG, UNK
  7. TRILISATE [Concomitant]
  8. DEXAMETHASONE [Concomitant]
  9. ZOLOFT (SERTRALINE HYDROCHLORIDE) [Concomitant]
     Dosage: 150 MG, UNK
  10. LOSARTAN [Concomitant]
     Dosage: 25 MG, UNK
  11. MULTIVITAMINS [Concomitant]
  12. CALCIUM [Concomitant]
  13. OMEGA 3 [Concomitant]
  14. CASODEX [Concomitant]
  15. PERCOCET [Concomitant]
  16. RESTORIL [Concomitant]
  17. OXYCODONE [Concomitant]
     Dosage: 10 MG, UNK
  18. CHEMOTHERAPEUTICS NOS [Concomitant]
  19. NAPROXEN [Concomitant]
     Indication: ARTHRITIS
     Dosage: 250 MG, UNK
  20. ZOLADEX [Concomitant]
  21. GOSERELIN ACETATE [Concomitant]
     Dosage: 10.8 MG, UNK
     Route: 058
  22. NYSTATIN [Concomitant]
  23. OXYBUTYNIN CHLORIDE [Concomitant]
     Dosage: 5 MG, UNK
  24. LACTULOSE [Concomitant]
     Dosage: 10 MG, UNK
  25. TEMAZEPAM [Concomitant]
     Dosage: 30 MG, UNK
  26. SERTRALINE HYDROCHLORIDE [Concomitant]
     Dosage: 100 MG, UNK
  27. BICALUTAMIDE [Concomitant]
     Dosage: 50 MG, UNK
  28. SIMVASTATIN [Concomitant]
     Dosage: 80 MG, UNK
  29. DOCUSATE SODIUM [Concomitant]
  30. CLOPIDOGREL BISULFATE [Concomitant]
     Dosage: 75 MG, UNK
  31. NITROGLYCERIN ^A.L.^ [Concomitant]
     Dosage: 0.4 MG, UNK
  32. AMOXICILLIN [Concomitant]
     Dosage: 250 MG, UNK
  33. SENNA [Concomitant]
     Dosage: 8.6 MG, UNK
  34. OMEPRAZOLE [Concomitant]
     Dosage: 20 MG, UNK
  35. FAMCICLOVIR [Concomitant]
     Dosage: 500 MG, UNK
  36. CHLORHEXIDINE GLUCONATE [Concomitant]
  37. PENICILLIN VK [Concomitant]
     Dosage: 250 MG, UNK
  38. IRBESARTAN [Concomitant]
     Dosage: 300 MG, UNK
  39. TERAZOSIN HYDROCHLORIDE [Concomitant]
     Dosage: 2 MG, UNK
  40. TAXOTERE [Concomitant]
  41. PROCRIT                            /00909301/ [Concomitant]
  42. FENTANYL [Concomitant]
  43. OXYCONTIN [Concomitant]
  44. TYLENOL W/CODEINE NO. 3 [Concomitant]
  45. PLAVIX [Concomitant]
  46. SENOKOT                                 /UNK/ [Concomitant]
  47. LOVASTATIN [Concomitant]
  48. IRON [Concomitant]
  49. TIAZAC [Concomitant]
  50. HYTRIN [Concomitant]
  51. MEVACOR [Concomitant]
  52. PREDNISONE [Concomitant]
  53. VASOTEC [Concomitant]
  54. NIACIN [Concomitant]
  55. VANCOMYCIN [Concomitant]
  56. XOPENEX [Concomitant]
  57. LOVENOX [Concomitant]
     Dosage: 40 MG, QD
     Route: 058
  58. BACID [Concomitant]
     Dosage: 2 DF, BID
     Route: 048
  59. ZOSYN [Concomitant]
     Route: 042
  60. COZAAR [Concomitant]
     Dosage: 50 MG, QD
     Route: 048
  61. HALDOL [Concomitant]
     Dosage: 2 MG, Q4H
  62. HALDOL [Concomitant]
     Dosage: 4 MG, Q4H
  63. AUGMENTIN [Concomitant]
     Dosage: 1 DF, BID
     Route: 048
  64. REMERON [Concomitant]
     Dosage: 15 MG, QHS
     Route: 048
  65. ROXANOL [Concomitant]
     Dosage: 5 MG, Q2H
  66. ROXANOL [Concomitant]
     Dosage: 10 MG, Q2H

REACTIONS (76)
  - Cardio-respiratory arrest [Fatal]
  - Cerebral ischaemia [Unknown]
  - Cerebral atrophy [Unknown]
  - Lacunar infarction [Unknown]
  - Lung infiltration [Unknown]
  - Pneumonia [Unknown]
  - Left ventricular dysfunction [Unknown]
  - Pulmonary vascular disorder [Unknown]
  - Pleural effusion [Unknown]
  - Osteonecrosis of jaw [Not Recovered/Not Resolved]
  - Bone disorder [Not Recovered/Not Resolved]
  - Stomatitis [Not Recovered/Not Resolved]
  - Infection [Not Recovered/Not Resolved]
  - Oral pain [Not Recovered/Not Resolved]
  - Injury [Unknown]
  - Pain [Unknown]
  - Mastication disorder [Unknown]
  - Anxiety [Unknown]
  - Oral disorder [Unknown]
  - Swelling [Unknown]
  - Bone loss [Unknown]
  - Tooth loss [Unknown]
  - Renal cyst [Unknown]
  - Bone pain [Unknown]
  - Syncope [Unknown]
  - Fall [Unknown]
  - Head injury [Unknown]
  - Subdural haematoma [Unknown]
  - Purpura [Unknown]
  - Arrhythmia [Unknown]
  - Malignant neoplasm progression [Unknown]
  - Intervertebral disc protrusion [Unknown]
  - Scoliosis [Unknown]
  - Spinal osteoarthritis [Unknown]
  - Vertebral foraminal stenosis [Unknown]
  - Spinal cord compression [Unknown]
  - Rib fracture [Unknown]
  - Deafness neurosensory [Unknown]
  - Otitis externa [Unknown]
  - Nasal septum deviation [Unknown]
  - Haematochezia [Unknown]
  - Chronic obstructive pulmonary disease [Unknown]
  - Hypertonic bladder [Unknown]
  - Cardiomegaly [Unknown]
  - Laceration [Unknown]
  - Haemorrhage intracranial [Unknown]
  - Confusional state [Unknown]
  - Anaemia [Unknown]
  - Dementia [Unknown]
  - Haematocrit decreased [Unknown]
  - Haemoglobin decreased [Unknown]
  - Dyspepsia [Unknown]
  - Dyspnoea [Unknown]
  - Colitis [Unknown]
  - Tendon calcification [Unknown]
  - Skin ulcer [Recovering/Resolving]
  - Metastases to liver [Unknown]
  - Dental caries [Unknown]
  - Intervertebral disc space narrowing [Unknown]
  - Contusion [Unknown]
  - Excoriation [Unknown]
  - Vascular calcification [Unknown]
  - Wound [Unknown]
  - Ecchymosis [Unknown]
  - Rales [Unknown]
  - Pulmonary fibrosis [Unknown]
  - Hepatic lesion [Unknown]
  - Gastrointestinal haemorrhage [Unknown]
  - Urinary tract infection [Unknown]
  - Deep vein thrombosis [Unknown]
  - Pulmonary embolism [Unknown]
  - Arthropathy [Unknown]
  - Spondylolisthesis [Unknown]
  - Vertebral osteophyte [Unknown]
  - Osteoarthritis [Unknown]
  - Pleural calcification [Unknown]
